FAERS Safety Report 6969535-1 (Version None)
Quarter: 2010Q3

REPORT INFORMATION
  Report Type: 
  Country: None (occurrence: None)
  Receive Date: 20100907
  Receipt Date: 20100907
  Transmission Date: 20110219
  Serious: Yes (Other)
  Sender: FDA-Public Use
  Company Number: None

PATIENT
  Age: 60 Year
  Sex: Female
  Weight: 102.9665 kg

DRUGS (1)
  1. NATEGLINIDE [Suspect]
     Indication: DIABETES MELLITUS
     Dosage: ONE PO TID
     Route: 048
     Dates: start: 20090901, end: 20091001

REACTIONS (3)
  - DIZZINESS [None]
  - NAUSEA [None]
  - NO THERAPEUTIC RESPONSE [None]
